FAERS Safety Report 8434407-2 (Version None)
Quarter: 2012Q2

REPORT INFORMATION
  Report Type: 
  Country: None (occurrence: None)
  Receive Date: 20120613
  Receipt Date: 20120607
  Transmission Date: 20120825
  Serious: Yes (Other)
  Sender: FDA-Public Use
  Company Number: US-AMGEN-USASP2012035718

PATIENT
  Age: 50 Year
  Sex: Female

DRUGS (2)
  1. ENBREL [Suspect]
     Indication: PSORIATIC ARTHROPATHY
  2. ENBREL [Suspect]
     Indication: PSORIASIS
     Dosage: 50 MG, 2 TIMES/WK
     Dates: start: 20120501

REACTIONS (11)
  - DEPRESSION [None]
  - HEADACHE [None]
  - INJECTION SITE ERYTHEMA [None]
  - PERIPHERAL COLDNESS [None]
  - HYPOAESTHESIA [None]
  - PARAESTHESIA [None]
  - INJECTION SITE MACULE [None]
  - INJECTION SITE HAEMATOMA [None]
  - FATIGUE [None]
  - PRURITUS GENERALISED [None]
  - AGITATION [None]
